FAERS Safety Report 19755089 (Version 1)
Quarter: 2021Q3

REPORT INFORMATION
  Report Type: Spontaneous
  Country: US (occurrence: US)
  Receive Date: 20210825
  Receipt Date: 20210825
  Transmission Date: 20211014
  Serious: No
  Sender: FDA-Public Use
  Company Number: None

PATIENT
  Age: 74 Year
  Sex: Male

DRUGS (1)
  1. AMLODIPINE (AMLODIPINE BESYLATE 2.5MG TAB) [Suspect]
     Active Substance: AMLODIPINE BESYLATE
     Indication: HYPERTENSION
     Route: 048
     Dates: start: 20190214, end: 20210712

REACTIONS (1)
  - Oedema [None]

NARRATIVE: CASE EVENT DATE: 20210615
